FAERS Safety Report 4332416-6 (Version None)
Quarter: 2004Q2

REPORT INFORMATION
  Report Type: 
  Country: None (occurrence: None)
  Receive Date: 20040401
  Receipt Date: 20040322
  Transmission Date: 20050107
  Serious: Yes (Death)
  Sender: FDA-Public Use
  Company Number: 04P-083-0254644-00

PATIENT
  Age: 69 Year
  Sex: Male

DRUGS (7)
  1. KLACID (BIAXIN) (CLARITHROMYCIN) (CLARITHROMYCIN) [Suspect]
     Indication: BRONCHOPNEUMONIA
  2. ALLOPURINOL TAB [Suspect]
     Indication: LABORATORY TEST ABNORMAL
     Dosage: 300 MG , 1 IN 1 D, PER ORAL
     Route: 048
     Dates: start: 20010310, end: 20010405
  3. FUROSEMIDE [Concomitant]
  4. POTASSIUM CANRENOATE [Concomitant]
  5. DIGOXIN [Concomitant]
  6. AMIODARONE HYDROCHLORIDE [Concomitant]
  7. COUMADIN [Concomitant]

REACTIONS (2)
  - EMBOLISM [None]
  - RASH [None]
